FAERS Safety Report 8438333-4 (Version None)
Quarter: 2012Q2

REPORT INFORMATION
  Report Type: 
  Country: None (occurrence: None)
  Receive Date: 20120614
  Receipt Date: 20120605
  Transmission Date: 20120825
  Serious: Yes (Other)
  Sender: FDA-Public Use
  Company Number: US-ENDO PHARMACEUTICALS INC.-OPCR20121330

PATIENT
  Sex: Female

DRUGS (7)
  1. OPANA ER [Concomitant]
     Route: 048
     Dates: end: 20120101
  2. CYMBALTA [Concomitant]
     Indication: PRODUCT USED FOR UNKNOWN INDICATION
     Dosage: UNK
  3. OPANA [Concomitant]
     Indication: BREAKTHROUGH PAIN
     Dosage: 10 MG
     Route: 048
  4. OPANA ER [Concomitant]
  5. CELEBREX [Concomitant]
     Indication: PRODUCT USED FOR UNKNOWN INDICATION
     Dosage: UNK
  6. OPANA ER [Suspect]
     Indication: MUSCULOSKELETAL PAIN
  7. OPANA ER [Suspect]
     Indication: BACK PAIN
     Route: 048
     Dates: start: 20120101, end: 20120101

REACTIONS (5)
  - OEDEMA PERIPHERAL [None]
  - INTENTIONAL DRUG MISUSE [None]
  - MALAISE [None]
  - DRUG EFFECT DECREASED [None]
  - DIZZINESS [None]
